FAERS Safety Report 14995820 (Version 1)
Quarter: 2018Q2

REPORT INFORMATION
  Report Type: Spontaneous
  Country: US (occurrence: US)
  Receive Date: 20180518
  Receipt Date: 20180518
  Transmission Date: 20180711
  Serious: Yes (Other)
  Sender: FDA-Public Use
  Company Number: None

PATIENT
  Age: 70 Year
  Sex: Female
  Weight: 93.44 kg

DRUGS (20)
  1. LOSARTAN. [Concomitant]
     Active Substance: LOSARTAN
  2. GLIMEPIRIDE. [Concomitant]
     Active Substance: GLIMEPIRIDE
  3. METOPROLOL SUCCINATE ER [Concomitant]
     Active Substance: METOPROLOL SUCCINATE
  4. FISH OIL [Concomitant]
     Active Substance: FISH OIL
  5. MULTI VIT, MINERAL [Concomitant]
  6. CHROMIUM PICOLINATE [Concomitant]
     Active Substance: CHROMIUM PICOLINATE
  7. ATORVASTATIN CALCIUM. [Concomitant]
     Active Substance: ATORVASTATIN CALCIUM
  8. BUSPIRONE HCL [Concomitant]
     Active Substance: BUSPIRONE HYDROCHLORIDE
  9. CENTRAVITES [Concomitant]
  10. MEDLINE CITIRIZINE HCL [Concomitant]
  11. OMEGA -3 [Concomitant]
  12. LIDOCAINE + MENTHOL [Concomitant]
  13. ALENDRONATE [Suspect]
     Active Substance: ALENDRONATE SODIUM
     Indication: BONE DENSITY ABNORMAL
     Route: 048
     Dates: start: 20180128
  14. DULOXETINE. [Concomitant]
     Active Substance: DULOXETINE
  15. FOCUS FACTOR, BRAIN NUTRITION [Concomitant]
  16. TRIDERMA PAIN RELIEF CREAM [Concomitant]
  17. VITAMIN D3 [Concomitant]
     Active Substance: CHOLECALCIFEROL
  18. MEDLINE ACETAMINOPHEN [Concomitant]
     Active Substance: ACETAMINOPHEN
  19. BLADDER CONTROL, GO LESS [Concomitant]
  20. LEVOTHYROXINE SODIUM. [Concomitant]
     Active Substance: LEVOTHYROXINE SODIUM

REACTIONS (10)
  - Vision blurred [None]
  - Muscle spasms [None]
  - Pruritus [None]
  - Contusion [None]
  - Myalgia [None]
  - Urticaria [None]
  - Pruritus generalised [None]
  - Blister [None]
  - Arthralgia [None]
  - Pain [None]

NARRATIVE: CASE EVENT DATE: 20180219
